FAERS Safety Report 10046575 (Version 3)
Quarter: 2014Q2

REPORT INFORMATION
  Report Type: Spontaneous
  Country: DE (occurrence: DE)
  Receive Date: 20140331
  Receipt Date: 20140428
  Transmission Date: 20141212
  Serious: Yes (Other)
  Sender: FDA-Public Use
  Company Number: DE-SHIRE-ALL1-2013-08760

PATIENT
  Age: 15 Year
  Sex: Male
  Weight: 59 kg

DRUGS (3)
  1. EQUASYM RETARD [Suspect]
     Indication: ATTENTION DEFICIT/HYPERACTIVITY DISORDER
     Dosage: 40 MG, UNKNOWN
     Route: 065
     Dates: start: 20130925, end: 201310
  2. EQUASYM RETARD [Suspect]
     Dosage: 30 MG, UNKNOWN
     Route: 065
     Dates: start: 20120801, end: 20130924
  3. EQUASYM RETARD [Suspect]
     Dosage: 30 UNK, UNK
     Route: 065
     Dates: start: 201310

REACTIONS (6)
  - Derealisation [Recovered/Resolved]
  - Hallucination [Recovered/Resolved]
  - Amnesia [Recovered/Resolved]
  - Claustrophobia [Recovered/Resolved]
  - Illusion [Recovered/Resolved]
  - Depersonalisation [Recovered/Resolved]
